FAERS Safety Report 7428741-2 (Version None)
Quarter: 2011Q2

REPORT INFORMATION
  Report Type: 
  Country: None (occurrence: None)
  Receive Date: 20110421
  Receipt Date: 20110419
  Transmission Date: 20111010
  Serious: Yes (Life-Threatening, Hospitalization)
  Sender: FDA-Public Use
  Company Number: NL-PFIZER INC-2011086106

PATIENT
  Age: 52 Year
  Sex: Female

DRUGS (8)
  1. TIOTROPIUM [Concomitant]
     Dosage: UNK
  2. ACETYLSALICYLIC ACID [Concomitant]
     Dosage: UNK
  3. CARBAMAZEPINE [Concomitant]
     Dosage: UNK
  4. ALGELDRATE [Concomitant]
     Dosage: UNK
  5. ABILIFY [Concomitant]
     Dosage: 30 MG, 1X/DAY
  6. NICOTINE [Concomitant]
     Dosage: UNK
  7. CHAMPIX [Suspect]
     Indication: SMOKING CESSATION THERAPY
     Dosage: 0.5 MG, 2X/DAY
  8. CITALOPRAM [Concomitant]
     Dosage: 20 MG, 1X/DAY

REACTIONS (3)
  - RESPIRATORY FAILURE [None]
  - SUICIDE ATTEMPT [None]
  - COMA [None]
